FAERS Safety Report 7750771-1 (Version None)
Quarter: 2011Q3

REPORT INFORMATION
  Report Type: 
  Country: None (occurrence: None)
  Receive Date: 20110914
  Receipt Date: 20110912
  Transmission Date: 20111222
  Serious: Yes (Hospitalization, Other)
  Sender: FDA-Public Use
  Company Number: US-BRISTOL-MYERS SQUIBB COMPANY-16050312

PATIENT
  Age: 59 Year
  Sex: Male

DRUGS (6)
  1. PRILOSEC [Concomitant]
  2. LEVOTHYROXINE SODIUM [Concomitant]
  3. LISINOPRIL [Concomitant]
  4. YERVOY [Suspect]
     Dosage: 1ST TREATMENT:28JUN
  5. PRAVASTATIN SODIUM [Concomitant]
  6. ASPIRIN [Concomitant]

REACTIONS (3)
  - DEHYDRATION [None]
  - ABDOMINAL PAIN [None]
  - DIARRHOEA [None]
